FAERS Safety Report 26135650 (Version 1)
Quarter: 2025Q4

REPORT INFORMATION
  Report Type: Spontaneous
  Country: US (occurrence: None)
  Receive Date: 20251208
  Receipt Date: 20251208
  Transmission Date: 20260117
  Serious: Yes (Death)
  Sender: FDA-CTU
  Company Number: None

PATIENT
  Age: 68 Year
  Sex: Female

DRUGS (11)
  1. ENVARSUS XR [Suspect]
     Active Substance: TACROLIMUS
     Indication: Heart transplant
     Dosage: FREQUENCY : DAILY;
     Route: 048
     Dates: start: 20250301
  2. FLUOROURACIL 1GM/20ML INJ 20ML [Concomitant]
  3. IRINOTECAN 1 00MG/5ML INJ, 5ML [Concomitant]
  4. OXALIPLATIN 1 00MG INJ, 20ML [Concomitant]
  5. VOL TAREN 1% GEL 50GM (OTC) [Concomitant]
  6. VITAMIN B-COMPLEX W/B-12 TABLETS [Concomitant]
  7. VITAMIN D 1,000IU SOFTGELS [Concomitant]
  8. BUPRENORPHINE 5MCG/HR TD PATCH [Concomitant]
  9. MYCOPHENOLIC ACID [Concomitant]
     Active Substance: MYCOPHENOLIC ACID
  10. PROPRANOLOL [Concomitant]
     Active Substance: PROPRANOLOL HYDROCHLORIDE
  11. TORSEMIDE 20MG TABLETS [Concomitant]

REACTIONS (1)
  - Death [None]
